FAERS Safety Report 19937466 (Version 4)
Quarter: 2021Q4

REPORT INFORMATION
  Report Type: Spontaneous
  Country: NZ (occurrence: NZ)
  Receive Date: 20211011
  Receipt Date: 20211116
  Transmission Date: 20220304
  Serious: Yes (Death, Hospitalization)
  Sender: FDA-Public Use
  Company Number: NZ-ABBVIE-21K-118-4112513-00

PATIENT
  Age: 70 Year
  Sex: Male

DRUGS (10)
  1. CARBIDOPA\LEVODOPA [Suspect]
     Active Substance: CARBIDOPA\LEVODOPA
     Indication: Parkinson^s disease
     Dosage: 20 MG/ML 5 MG/ML GEL
     Route: 050
     Dates: end: 20211008
  2. CARBIDOPA\LEVODOPA [Suspect]
     Active Substance: CARBIDOPA\LEVODOPA
  3. CLONAZEPAM [Concomitant]
     Active Substance: CLONAZEPAM
     Indication: Product used for unknown indication
     Dosage: AT NIGHT
     Route: 048
     Dates: end: 20211014
  4. CLOPIDOGREL [Concomitant]
     Active Substance: CLOPIDOGREL BISULFATE
     Indication: Product used for unknown indication
     Dosage: AT MORNING
     Route: 048
     Dates: end: 20211014
  5. DOCUSATE SODIUM\SENNOSIDES A AND B [Concomitant]
     Active Substance: DOCUSATE SODIUM\SENNOSIDES A AND B
     Indication: Product used for unknown indication
     Route: 048
     Dates: end: 20211014
  6. QUETIAPINE [Concomitant]
     Active Substance: QUETIAPINE
     Indication: Product used for unknown indication
     Dosage: AT NIGHT
     Route: 048
     Dates: end: 20211014
  7. ENSURE [Concomitant]
     Active Substance: AMINO ACIDS\DEXTROSE\ELECTROLYTES NOS\SOYBEAN OIL\VITAMINS
     Indication: Product used for unknown indication
     Dosage: POWDER ONE SCOOP
     Route: 048
     Dates: end: 20211014
  8. LACTULOSE [Concomitant]
     Active Substance: LACTULOSE
     Indication: Product used for unknown indication
     Dosage: ORAL LIQUID
     Route: 048
     Dates: end: 20211014
  9. HYDROCORTISONE BUTYRATE [Concomitant]
     Active Substance: HYDROCORTISONE BUTYRATE
     Indication: Product used for unknown indication
     Dosage: TWICE A DAY AS REQUIRED
     Route: 061
     Dates: end: 20211014
  10. CETOMACROGOL;GLYCEROL [Concomitant]
     Indication: Product used for unknown indication
     Route: 061
     Dates: end: 20211014

REACTIONS (3)
  - General physical health deterioration [Fatal]
  - Pneumonia aspiration [Fatal]
  - Terminal state [Unknown]

NARRATIVE: CASE EVENT DATE: 20211001
